FAERS Safety Report 9324122 (Version 4)
Quarter: 2014Q3

REPORT INFORMATION
  Report Type: Spontaneous
  Country: CA (occurrence: CA)
  Receive Date: 20130603
  Receipt Date: 20140915
  Transmission Date: 20150326
  Serious: Yes (Life-Threatening, Hospitalization)
  Sender: FDA-Public Use
  Company Number: CA-JNJFOC-20130515181

PATIENT
  Sex: Male
  Weight: 2 kg

DRUGS (7)
  1. OXYCODONE [Suspect]
     Active Substance: OXYCODONE
     Indication: EXPOSURE DURING BREAST FEEDING
     Route: 063
  2. OXYCODONE [Suspect]
     Active Substance: OXYCODONE
     Indication: EXPOSURE DURING BREAST FEEDING
     Route: 063
  3. ACETAMINOPHEN. [Suspect]
     Active Substance: ACETAMINOPHEN
     Route: 063
  4. IBUPROFEN. [Suspect]
     Active Substance: IBUPROFEN
     Indication: EXPOSURE DURING BREAST FEEDING
     Route: 063
  5. CODEINE [Suspect]
     Active Substance: CODEINE
     Indication: EXPOSURE DURING BREAST FEEDING
     Route: 063
  6. TYLENOL WITH CODEINE [Suspect]
     Active Substance: ACETAMINOPHEN\CODEINE PHOSPHATE
     Indication: EXPOSURE DURING BREAST FEEDING
     Dosage: 3.0 DOSAGE??FORMS
     Route: 063
  7. ACETAMINOPHEN. [Suspect]
     Active Substance: ACETAMINOPHEN
     Indication: EXPOSURE DURING BREAST FEEDING
     Route: 063

REACTIONS (4)
  - Lethargy [Unknown]
  - Respiratory arrest [Unknown]
  - Exposure during breast feeding [Unknown]
  - Hypersomnia [Unknown]
